FAERS Safety Report 8761403 (Version 1)
Quarter: 2012Q4

REPORT INFORMATION
  Report Type: 
  Country: EC (occurrence: EC)
  Receive Date: 20120828
  Receipt Date: 20120828
  Transmission Date: 20130627
  Serious: Yes (Other)
  Sender: FDA-Public Use
  Company Number: EC-PFIZER INC-2012190979

PATIENT
  Age: 75 Year
  Sex: Female

DRUGS (4)
  1. LIPITOR [Suspect]
     Dosage: 20 mg, 1x/day
     Route: 048
     Dates: start: 2005, end: 201204
  2. LIPITOR [Suspect]
     Dosage: 10 mg, 1x/day
     Dates: start: 201204, end: 201207
  3. LIPITOR [Suspect]
     Dosage: 20 mg, 1x/day
     Dates: start: 201207
  4. ZOPLICONE [Concomitant]
     Dosage: UNK
     Route: 048

REACTIONS (1)
  - Liver injury [Unknown]
